FAERS Safety Report 16356579 (Version 2)
Quarter: 2019Q2

REPORT INFORMATION
  Report Type: Spontaneous
  Country: EG (occurrence: EG)
  Receive Date: 20190527
  Receipt Date: 20190530
  Transmission Date: 20190711
  Serious: Yes (Death, Hospitalization, Other)
  Sender: FDA-Public Use
  Company Number: EG-SA-2019SA140962

PATIENT
  Age: 9 Year
  Sex: Female
  Weight: 18 kg

DRUGS (2)
  1. CEREZYME [Suspect]
     Active Substance: IMIGLUCERASE
     Indication: GAUCHER^S DISEASE TYPE III
     Dosage: 3.3 MG/KG, QOW
     Route: 042
     Dates: start: 20181030
  2. CARBAMAZEPINE. [Concomitant]
     Active Substance: CARBAMAZEPINE
     Indication: SEIZURE
     Dosage: UNK
     Route: 065

REACTIONS (2)
  - Status epilepticus [Fatal]
  - Cyanosis [Unknown]

NARRATIVE: CASE EVENT DATE: 20190521
